FAERS Safety Report 8598835-7 (Version None)
Quarter: 2012Q3

REPORT INFORMATION
  Report Type: 
  Country: None (occurrence: None)
  Receive Date: 20120816
  Receipt Date: 20120807
  Transmission Date: 20120928
  Serious: Yes (Other)
  Sender: FDA-Public Use
  Company Number: JP-GLAXOSMITHKLINE-B0814541A

PATIENT
  Sex: Female
  Weight: 61 kg

DRUGS (10)
  1. REVOLADE [Suspect]
     Dosage: 25MG PER DAY
     Route: 048
     Dates: start: 20111031, end: 20120209
  2. REVOLADE [Suspect]
     Dosage: 37.5MG PER DAY
     Route: 048
     Dates: start: 20120210
  3. MUCOSTA [Concomitant]
     Indication: PROPHYLAXIS
     Dosage: 200MG PER DAY
     Route: 048
  4. PREDNISOLONE [Concomitant]
     Dosage: 20MG PER DAY
     Route: 048
     Dates: start: 20110810
  5. D-ALFA [Concomitant]
     Indication: PROPHYLAXIS
     Dosage: .5MCG PER DAY
     Route: 048
  6. REVOLADE [Suspect]
     Indication: IDIOPATHIC THROMBOCYTOPENIC PURPURA
     Dosage: 12.5MG PER DAY
     Route: 048
     Dates: start: 20110617, end: 20111030
  7. LORFENAMIN [Concomitant]
     Indication: RIB FRACTURE
     Dosage: 120MG PER DAY
     Route: 048
     Dates: start: 20111119, end: 20111126
  8. CEFOTAX [Concomitant]
     Indication: RIB FRACTURE
     Dosage: 100MG PER DAY
     Route: 048
     Dates: start: 20111119, end: 20111126
  9. PREDNISOLONE [Concomitant]
     Indication: IDIOPATHIC THROMBOCYTOPENIC PURPURA
     Dosage: 15MG PER DAY
     Route: 048
     Dates: start: 20110714, end: 20110809
  10. PROTECADIN [Concomitant]
     Indication: PROPHYLAXIS
     Dosage: 10MG PER DAY
     Route: 048

REACTIONS (1)
  - HAEMOLYTIC ANAEMIA [None]
